FAERS Safety Report 7030697-1 (Version None)
Quarter: 2010Q4

REPORT INFORMATION
  Report Type: 
  Country: None (occurrence: None)
  Receive Date: 20101006
  Receipt Date: 20100927
  Transmission Date: 20110411
  Serious: Yes (Other)
  Sender: FDA-Public Use
  Company Number: JP-JNJCH-2010022334

PATIENT
  Age: 71 Year
  Sex: Male

DRUGS (3)
  1. ZYRTEC [Suspect]
     Indication: PRODUCT USED FOR UNKNOWN INDICATION
     Dosage: TEXT:10 MG QD
     Route: 048
  2. ZYRTEC [Suspect]
     Dosage: TEXT:20 MG QD
     Route: 048
  3. TAKEPRON [Suspect]
     Indication: PRODUCT USED FOR UNKNOWN INDICATION
     Dosage: TEXT:20 MG QD
     Route: 048

REACTIONS (1)
  - PLATELET COUNT DECREASED [None]
